FAERS Safety Report 7681916 (Version 4)
Quarter: 2013Q2

REPORT INFORMATION
  Report Type: Report from Study
  Country: CL (occurrence: CL)
  Receive Date: 20101124
  Receipt Date: 20130516
  Transmission Date: 20140414
  Serious: Yes (Hospitalization, Other)
  Sender: FDA-Public Use
  Company Number: PHHY2010CL76540

PATIENT
  Age: 76 Year
  Sex: Female

DRUGS (7)
  1. TAREG D [Suspect]
     Indication: HYPERTENSION
     Dosage: 80 MG VALS AND 12.5 MG HYDR
     Route: 048
  2. CHEMOTHERAPEUTICS NOS [Concomitant]
     Dosage: UNK UKN, UNK
  3. RADIO-THERAPY [Concomitant]
     Dosage: UNK UKN, UNK
     Dates: start: 201011
  4. CELEBRA [Concomitant]
     Dosage: 1 DF, Q12H
  5. SUPRACAL [Concomitant]
     Dosage: 3 DF, QD
  6. GLAFORNIL [Concomitant]
     Dosage: 1 DF, QD
  7. DORMONID [Concomitant]
     Dosage: 1 DF, QD

REACTIONS (8)
  - Upper limb fracture [Unknown]
  - Bone cancer [Not Recovered/Not Resolved]
  - Lung neoplasm malignant [Not Recovered/Not Resolved]
  - Pleural effusion [Unknown]
  - Bone pain [Unknown]
  - Metastases to bone [Unknown]
  - Alopecia [Unknown]
  - Malaise [Unknown]
